FAERS Safety Report 6912447-X (Version None)
Quarter: 2010Q3

REPORT INFORMATION
  Report Type: 
  Country: None (occurrence: None)
  Receive Date: 20100806
  Receipt Date: 20080513
  Transmission Date: 20110219
  Serious: No
  Sender: FDA-Public Use
  Company Number: US-PFIZER INC-2008042312

PATIENT
  Sex: Male
  Weight: 100 kg

DRUGS (8)
  1. DETROL LA [Suspect]
     Indication: BLADDER DISORDER
     Dates: start: 20080401
  2. TIAZAC [Concomitant]
  3. TRIAMTERENE [Concomitant]
  4. GLIMEPIRIDE [Concomitant]
  5. AVODART [Concomitant]
  6. QUINAPRIL [Concomitant]
  7. VALSARTAN [Concomitant]
  8. SIMVASTATIN [Concomitant]

REACTIONS (2)
  - DRY MOUTH [None]
  - NASAL DRYNESS [None]
